FAERS Safety Report 8394674-0 (Version None)
Quarter: 2012Q2

REPORT INFORMATION
  Report Type: 
  Country: None (occurrence: None)
  Receive Date: 20120529
  Receipt Date: 20120529
  Transmission Date: 20120825
  Serious: Yes (Hospitalization)
  Sender: FDA-Public Use
  Company Number: None

PATIENT
  Age: 62 Year
  Sex: Female
  Weight: 85 kg

DRUGS (2)
  1. HEPARIN [Suspect]
     Indication: CORONARY ARTERY BYPASS
     Dosage: ONE TIME INTRA-ARTERIAL
     Route: 013
     Dates: start: 20120501, end: 20120501
  2. HEPARIN [Suspect]
     Indication: ANTICOAGULANT THERAPY
     Dosage: ONE TIME INTRA-ARTERIAL
     Route: 013
     Dates: start: 20120501, end: 20120501

REACTIONS (5)
  - HEPATIC FAILURE [None]
  - THROMBOTIC THROMBOCYTOPENIC PURPURA [None]
  - MEDICAL DEVICE COMPLICATION [None]
  - METABOLIC ACIDOSIS [None]
  - RENAL FAILURE [None]
